FAERS Safety Report 4314260-9 (Version None)
Quarter: 2004Q1

REPORT INFORMATION
  Report Type: 
  Country: None (occurrence: None)
  Receive Date: 20040308
  Receipt Date: 20040223
  Transmission Date: 20041129
  Serious: Yes (Death, Other)
  Sender: FDA-Public Use
  Company Number: USA-2003-0011378

PATIENT
  Age: 55 Year
  Sex: Male
  Weight: 79.4 kg

DRUGS (11)
  1. OXYCONTIN [Suspect]
  2. HYDROCODONE BITARTRATE [Suspect]
  3. LIDOCAINE [Suspect]
  4. COCAINE(COCAINE) [Suspect]
  5. ACETAMINOPHEN [Suspect]
  6. DIPHENHYDRAMINE HCL [Suspect]
  7. QUINIDINE(QUINIDINE) [Suspect]
  8. QUININE (QUININE) [Suspect]
  9. METHYL SALICYLATE (METHYL SALICYLATE) [Suspect]
  10. CAFFEINE (CAFFEINE) [Suspect]
  11. INSULIN [Concomitant]

REACTIONS (6)
  - CIRCULATORY COLLAPSE [None]
  - CONVULSION [None]
  - CORONARY ARTERY ATHEROSCLEROSIS [None]
  - DRUG ABUSER [None]
  - SPLENOMEGALY [None]
  - VENTRICULAR HYPERTROPHY [None]
